FAERS Safety Report 25767136 (Version 2)
Quarter: 2025Q3

REPORT INFORMATION
  Report Type: Spontaneous
  Country: US (occurrence: US)
  Receive Date: 20250905
  Receipt Date: 20250930
  Transmission Date: 20251021
  Serious: No
  Sender: SANOFI AVENTIS
  Company Number: US-SA-2025SA265249

PATIENT
  Age: 71 Year
  Sex: Male

DRUGS (12)
  1. DUPIXENT [Suspect]
     Active Substance: DUPILUMAB
     Indication: Chronic obstructive pulmonary disease
     Dosage: 300 MG, QOW
     Route: 058
     Dates: start: 2025
  2. DUPIXENT [Suspect]
     Active Substance: DUPILUMAB
     Indication: Asthma-chronic obstructive pulmonary disease overlap syndrome
  3. REPATHA [Concomitant]
     Active Substance: EVOLOCUMAB
     Dosage: 1 DF, QOW
     Route: 058
  4. SSKI [Concomitant]
     Active Substance: POTASSIUM IODIDE
     Dosage: 3 DROP, TID
     Route: 048
  5. SPIRIVA [Concomitant]
     Active Substance: TIOTROPIUM BROMIDE MONOHYDRATE
     Dosage: 18 UG, QD
     Route: 055
  6. TETANUS AND DIPHTHERIA TOXOIDS ADSORBED (VACCINE) [Concomitant]
     Active Substance: CLOSTRIDIUM TETANI\CLOSTRIDIUM TETANI TOXOID ANTIGEN (FORMALDEHYDE INACTIVATED)\CORYNEBACTERIUM DIPH
     Indication: Immunisation
     Route: 030
     Dates: start: 202401
  7. EPIPEN [Concomitant]
     Active Substance: EPINEPHRINE
  8. ALBUTEROL SULFATE [Concomitant]
     Active Substance: ALBUTEROL SULFATE
     Route: 055
  9. METOPROLOL SUCCINATE [Concomitant]
     Active Substance: METOPROLOL SUCCINATE
     Dosage: QD
     Route: 048
  10. WIXELA INHUB [Concomitant]
     Active Substance: FLUTICASONE PROPIONATE\SALMETEROL XINAFOATE
     Dosage: 1 PUFF
     Route: 048
  11. IPRATROPIUM BROMIDE [Concomitant]
     Active Substance: IPRATROPIUM BROMIDE
     Route: 045
  12. ADVAIR HFA [Concomitant]
     Active Substance: FLUTICASONE PROPIONATE\SALMETEROL XINAFOATE
     Dosage: 1 PUFF, BID
     Route: 048

REACTIONS (13)
  - Fluid retention [Unknown]
  - Condition aggravated [Unknown]
  - Joint swelling [Unknown]
  - Condition aggravated [Unknown]
  - Pulmonary mass [Unknown]
  - Bronchial secretion retention [Unknown]
  - Upper-airway cough syndrome [Unknown]
  - Chronic obstructive pulmonary disease [Unknown]
  - Dyspnoea [Unknown]
  - Secretion discharge [Unknown]
  - Productive cough [Unknown]
  - Hypersensitivity [Unknown]
  - Product use in unapproved indication [Unknown]

NARRATIVE: CASE EVENT DATE: 20250101
